FAERS Safety Report 9475197 (Version 1)
Quarter: 2013Q3

REPORT INFORMATION
  Report Type: Spontaneous
  Country: IT (occurrence: IT)
  Receive Date: 20130825
  Receipt Date: 20130825
  Transmission Date: 20140515
  Serious: Yes (Death, Hospitalization)
  Sender: FDA-Public Use
  Company Number: IT-MYLANLABS-2013S1010681

PATIENT
  Age: 61 Year
  Sex: Female

DRUGS (3)
  1. METFORMIN [Suspect]
     Indication: DIABETES MELLITUS
     Route: 048
     Dates: start: 20050101, end: 20130202
  2. DICLOFENAC [Suspect]
     Indication: BACK PAIN
     Route: 030
     Dates: start: 20130129, end: 20130131
  3. DICLOFENAC [Suspect]
     Indication: BACK PAIN

REACTIONS (2)
  - Metabolic acidosis [Fatal]
  - Septic shock [Fatal]
